FAERS Safety Report 8901403 (Version 1)
Quarter: 2012Q4

REPORT INFORMATION
  Report Type: 
  Country: LT (occurrence: LT)
  Receive Date: 20121109
  Receipt Date: 20121109
  Transmission Date: 20130627
  Serious: Yes (Hospitalization, Other)
  Sender: FDA-Public Use
  Company Number: LT-JNJFOC-20121101588

PATIENT
  Age: 67 Year
  Sex: Female
  Weight: 70 kg

DRUGS (5)
  1. REMICADE [Suspect]
     Indication: RHEUMATOID ARTHRITIS
     Route: 042
     Dates: start: 20100802
  2. PREDNISOLONE [Concomitant]
     Indication: RHEUMATOID ARTHRITIS
     Route: 048
  3. METHOTREXATE [Concomitant]
     Indication: RHEUMATOID ARTHRITIS
     Route: 048
  4. ASPIRIN [Concomitant]
     Indication: CORONARY ARTERY DISEASE
     Route: 048
  5. NOLIPREL [Concomitant]
     Indication: HYPERTENSION
     Dosage: 5mg/1,25 mg
     Route: 048

REACTIONS (1)
  - Myocardial infarction [Recovering/Resolving]
